FAERS Safety Report 9717491 (Version 2)
Quarter: 2013Q4

REPORT INFORMATION
  Report Type: Spontaneous
  Country: US (occurrence: US)
  Receive Date: 20131127
  Receipt Date: 20131127
  Transmission Date: 20140711
  Serious: No
  Sender: FDA-Public Use
  Company Number: US-GILEAD-2008-0019635

PATIENT
  Age: 65 Year
  Sex: Female
  Weight: 76.2 kg

DRUGS (9)
  1. LETAIRIS [Suspect]
     Indication: PULMONARY ARTERIAL HYPERTENSION
     Route: 048
     Dates: start: 20081225, end: 20081226
  2. ADVAIR [Concomitant]
  3. VYTORIN [Concomitant]
  4. LISINOPRIL [Concomitant]
  5. LANTUS [Concomitant]
  6. NOVOLOG [Concomitant]
  7. OSCAL 500 [Concomitant]
  8. FOLIC ACID [Concomitant]
  9. IRON [Concomitant]

REACTIONS (1)
  - Dyspnoea [Recovered/Resolved]
